FAERS Safety Report 7514174-7 (Version None)
Quarter: 2011Q2

REPORT INFORMATION
  Report Type: 
  Country: None (occurrence: None)
  Receive Date: 20110531
  Receipt Date: 20110527
  Transmission Date: 20111010
  Serious: Yes (Hospitalization)
  Sender: FDA-Public Use
  Company Number: NL-PFIZER INC-2011075683

PATIENT
  Age: 50 Year
  Sex: Male

DRUGS (1)
  1. VARENICLINE TARTRATE [Suspect]
     Dosage: UNK

REACTIONS (6)
  - DYSPNOEA [None]
  - PALPITATIONS [None]
  - PAIN IN JAW [None]
  - NAUSEA [None]
  - CHEST PAIN [None]
  - DIZZINESS [None]
